FAERS Safety Report 21029819 (Version 4)
Quarter: 2022Q3

REPORT INFORMATION
  Report Type: Report from Study
  Country: US (occurrence: US)
  Receive Date: 20220630
  Receipt Date: 20220830
  Transmission Date: 20221027
  Serious: Yes (Hospitalization)
  Sender: FDA-Public Use
  Company Number: US-BoehringerIngelheim-2022-BI-155049

PATIENT
  Sex: Male

DRUGS (1)
  1. OFEV [Suspect]
     Active Substance: NINTEDANIB
     Indication: Idiopathic pulmonary fibrosis
     Dosage: 103969
     Route: 048
     Dates: start: 20220208

REACTIONS (7)
  - Blood urine present [Unknown]
  - Diarrhoea [Unknown]
  - Neoplasm [Unknown]
  - Malaise [Unknown]
  - Weight increased [Unknown]
  - Cough [Unknown]
  - Constipation [Unknown]
